FAERS Safety Report 9217603 (Version 1)
Quarter: 2013Q2

REPORT INFORMATION
  Report Type: Spontaneous
  Country: US (occurrence: US)
  Receive Date: 20130408
  Receipt Date: 20130408
  Transmission Date: 20140414
  Serious: Yes (Other)
  Sender: FDA-Public Use
  Company Number: US-BAYER-2013-042693

PATIENT
  Age: 78 Year
  Sex: Female
  Weight: 72.56 kg

DRUGS (5)
  1. BAYER ASPIRIN REGIMEN ADULT LOW STRENGTH [Suspect]
     Indication: ISCHAEMIC HEART DISEASE PROPHYLAXIS
     Dosage: 1 DF, QD
     Route: 048
     Dates: start: 1996
  2. SIMVASTATIN [Suspect]
  3. DIOVAN [Concomitant]
  4. MAGNESIUM [Concomitant]
  5. MULTIVITAMIN [Concomitant]

REACTIONS (2)
  - Skin haemorrhage [Recovered/Resolved]
  - Increased tendency to bruise [Not Recovered/Not Resolved]
